FAERS Safety Report 7134634-0 (Version None)
Quarter: 2010Q4

REPORT INFORMATION
  Report Type: 
  Country: None (occurrence: None)
  Receive Date: 20101203
  Receipt Date: 20101124
  Transmission Date: 20110411
  Serious: Yes (Hospitalization, Other)
  Sender: FDA-Public Use
  Company Number: PHHY2010FR74715

PATIENT
  Age: 45 Year
  Sex: Female

DRUGS (1)
  1. OXCARBAZEPINE [Suspect]
     Indication: PARTIAL SEIZURES

REACTIONS (24)
  - AGITATION [None]
  - ANXIETY [None]
  - BLOOD PRESSURE DECREASED [None]
  - CREPITATIONS [None]
  - DERMATITIS EXFOLIATIVE [None]
  - DIARRHOEA [None]
  - DRUG RASH WITH EOSINOPHILIA AND SYSTEMIC SYMPTOMS [None]
  - ELECTROCARDIOGRAM PQ INTERVAL PROLONGED [None]
  - EPIDERMAL NECROSIS [None]
  - GAMMA-GLUTAMYLTRANSFERASE INCREASED [None]
  - HAEMODYNAMIC INSTABILITY [None]
  - HEART RATE INCREASED [None]
  - LYMPHOCYTIC INFILTRATION [None]
  - PERICARDITIS [None]
  - PURPURA [None]
  - PYREXIA [None]
  - RASH MACULO-PAPULAR [None]
  - RESPIRATORY FAILURE [None]
  - SEPTIC SHOCK [None]
  - SINUS TACHYCARDIA [None]
  - SKIN LESION [None]
  - URTICARIA [None]
  - VOMITING [None]
  - WHITE BLOOD CELL COUNT INCREASED [None]
